FAERS Safety Report 17228348 (Version 1)
Quarter: 2020Q1

REPORT INFORMATION
  Report Type: Spontaneous
  Country: FR (occurrence: FR)
  Receive Date: 20200103
  Receipt Date: 20200103
  Transmission Date: 20200409
  Serious: Yes (Hospitalization)
  Sender: FDA-Public Use
  Company Number: FR-TEVA-2019-FR-1160602

PATIENT
  Age: 72 Year
  Sex: Male
  Weight: 82 kg

DRUGS (8)
  1. NEFOPAM (CHLORHYDRATE DE) [Concomitant]
     Active Substance: NEFOPAM HYDROCHLORIDE
     Route: 048
  2. PARACETAMOL [Concomitant]
     Active Substance: ACETAMINOPHEN
     Dosage: 4 GM PER DAY
     Route: 048
     Dates: start: 20190630
  3. KETOPROFENE [Suspect]
     Active Substance: KETOPROFEN
     Indication: DRUG INEFFECTIVE
     Dosage: 200 MG PER DAY
     Route: 048
     Dates: start: 20190705, end: 20190706
  4. PERIOLIMEL [Concomitant]
  5. ENOXAPARINE SODIQUE ((MAMMIFERE/PORC/MUQUEUSE INTESTINALE)) [Concomitant]
     Active Substance: ENOXAPARIN SODIUM
     Indication: ATRIAL FIBRILLATION
     Dosage: 0.4 ML PER DAY
     Route: 058
     Dates: start: 20190703, end: 20190705
  6. SPASFON [Concomitant]
     Route: 048
  7. ONDANSETRON [Concomitant]
     Active Substance: ONDANSETRON
     Route: 048
  8. TRAMADOL BASE [Concomitant]
     Active Substance: TRAMADOL
     Route: 048

REACTIONS (3)
  - Atrial tachycardia [Recovered/Resolved]
  - Atrial fibrillation [Recovered/Resolved]
  - Condition aggravated [Recovered/Resolved]

NARRATIVE: CASE EVENT DATE: 20190706
